FAERS Safety Report 21579661 (Version 1)
Quarter: 2022Q4

REPORT INFORMATION
  Report Type: Spontaneous
  Country: CA (occurrence: None)
  Receive Date: 20221110
  Receipt Date: 20221110
  Transmission Date: 20230112
  Serious: Yes (Life-Threatening, Hospitalization, Disabling)
  Sender: FDA-Public Use
  Company Number: None

PATIENT
  Age: 57 Year
  Sex: Female
  Weight: 68.04 kg

DRUGS (11)
  1. GABAPENTIN [Suspect]
     Active Substance: GABAPENTIN
  2. LEVOTHYROXINE SODIUM [Concomitant]
     Active Substance: LEVOTHYROXINE SODIUM
  3. VORTIOXETINE [Concomitant]
     Active Substance: VORTIOXETINE
  4. REBAPRAZOLE SODIUM [Concomitant]
  5. ESTROGEL [Concomitant]
  6. LOREZEPAM [Concomitant]
  7. GABAPENTIN [Concomitant]
     Active Substance: GABAPENTIN
  8. SOLIFENACIN SUCCINATE [Concomitant]
     Active Substance: SOLIFENACIN SUCCINATE
  9. VITAMIN B12 [Concomitant]
     Active Substance: CYANOCOBALAMIN
  10. VITAMIN DE +K2 [Concomitant]
  11. MAGNESIUM GLYCINATE [Concomitant]
     Active Substance: MAGNESIUM GLYCINATE

REACTIONS (7)
  - Intestinal perforation [None]
  - Intestinal fistula [None]
  - Incision site pain [None]
  - Urinary incontinence [None]
  - Stoma obstruction [None]
  - Injury [None]
  - Emotional disorder [None]

NARRATIVE: CASE EVENT DATE: 20211125
